FAERS Safety Report 4649505-9 (Version None)
Quarter: 2005Q2

REPORT INFORMATION
  Report Type: 
  Country: None (occurrence: None)
  Receive Date: 20050428
  Receipt Date: 20050428
  Transmission Date: 20051028
  Serious: Yes (Hospitalization)
  Sender: FDA-Public Use
  Company Number: None

PATIENT

DRUGS (2)
  1. CISPLATIN [Suspect]
  2. RADIATION [Suspect]

REACTIONS (4)
  - ASPIRATION [None]
  - LOBAR PNEUMONIA [None]
  - NEUTROPENIA [None]
  - PYREXIA [None]
